FAERS Safety Report 11715524 (Version 3)
Quarter: 2015Q4

REPORT INFORMATION
  Report Type: Spontaneous
  Country: CA (occurrence: CA)
  Receive Date: 20151109
  Receipt Date: 20151112
  Transmission Date: 20160304
  Serious: Yes (Hospitalization, Other)
  Sender: FDA-Public Use
  Company Number: PHHY2015CA142670

PATIENT
  Age: 58 Year
  Sex: Female

DRUGS (13)
  1. ZENHALE [Concomitant]
     Active Substance: FORMOTEROL FUMARATE\MOMETASONE FUROATE
     Indication: PRODUCT USED FOR UNKNOWN INDICATION
     Route: 065
  2. THEOPHYLLINE [Concomitant]
     Active Substance: THEOPHYLLINE ANHYDROUS
     Indication: PRODUCT USED FOR UNKNOWN INDICATION
     Route: 065
  3. APO-FUROSEMIDE [Concomitant]
     Indication: PRODUCT USED FOR UNKNOWN INDICATION
     Route: 065
  4. APO-SERTRALINE [Concomitant]
     Active Substance: SERTRALINE HYDROCHLORIDE
     Indication: PRODUCT USED FOR UNKNOWN INDICATION
     Route: 065
  5. FELODIPINE SANDOZ [Suspect]
     Active Substance: FELODIPINE
     Indication: BLOOD PRESSURE MEASUREMENT
     Dosage: 5 MG, BID
     Route: 048
  6. FELODIPINE SANDOZ [Suspect]
     Active Substance: FELODIPINE
     Indication: RAYNAUD^S PHENOMENON
  7. VENTOLINE [Concomitant]
     Active Substance: ALBUTEROL
     Indication: PRODUCT USED FOR UNKNOWN INDICATION
     Route: 065
  8. SINGULAIR [Concomitant]
     Active Substance: MONTELUKAST SODIUM
     Indication: PRODUCT USED FOR UNKNOWN INDICATION
     Route: 065
  9. APO-OMEPRAZOLE [Concomitant]
     Active Substance: OMEPRAZOLE
     Indication: PRODUCT USED FOR UNKNOWN INDICATION
     Route: 065
  10. TYLENOL [Concomitant]
     Active Substance: ACETAMINOPHEN
     Indication: PRODUCT USED FOR UNKNOWN INDICATION
     Route: 065
  11. BISOPROLOL FUMARATE SANDOZ [Suspect]
     Active Substance: BISOPROLOL FUMARATE
     Indication: HEART RATE INCREASED
     Dosage: 5 MG, QD
     Route: 048
     Dates: start: 201405
  12. IRBESARTAN SANDOZ [Suspect]
     Active Substance: IRBESARTAN
     Indication: BLOOD PRESSURE MEASUREMENT
     Dosage: 150 MG, QD
     Route: 048
  13. MELATONIN [Concomitant]
     Active Substance: MELATONIN
     Indication: SLEEP DISORDER
     Route: 065

REACTIONS (8)
  - Respiratory distress [Unknown]
  - Pneumonia [Unknown]
  - Asthma [Unknown]
  - Pulmonary embolism [Unknown]
  - Dyspnoea [Unknown]
  - Chest pain [Unknown]
  - Gastrooesophageal reflux disease [Unknown]
  - Chest discomfort [Unknown]

NARRATIVE: CASE EVENT DATE: 2014
